FAERS Safety Report 19631576 (Version 1)
Quarter: 2021Q3

REPORT INFORMATION
  Report Type: Spontaneous
  Country: IL (occurrence: IL)
  Receive Date: 20210729
  Receipt Date: 20210729
  Transmission Date: 20211014
  Serious: Yes (Life-Threatening)
  Sender: FDA-Public Use
  Company Number: IL-SA-2021SA249059

PATIENT
  Age: 21 Year
  Sex: Female

DRUGS (1)
  1. STERONASE AQ [Suspect]
     Active Substance: TRIAMCINOLONE ACETONIDE
     Dosage: UNK UNK, QD
     Dates: start: 20210720

REACTIONS (3)
  - Dyspepsia [Unknown]
  - Dyspnoea [Unknown]
  - Oropharyngeal pain [Unknown]
